FAERS Safety Report 14546023 (Version 1)
Quarter: 2018Q1

REPORT INFORMATION
  Report Type: Spontaneous
  Country: US (occurrence: US)
  Receive Date: 20180219
  Receipt Date: 20180219
  Transmission Date: 20180509
  Serious: No
  Sender: FDA-Public Use
  Company Number: US-TEVA-767916ACC

PATIENT
  Sex: Female

DRUGS (7)
  1. MIRTAZAPINE. [Suspect]
     Active Substance: MIRTAZAPINE
     Indication: SLEEP DISORDER
     Dates: start: 20170518
  2. XANAX [Concomitant]
     Active Substance: ALPRAZOLAM
  3. MIRTAZAPINE. [Suspect]
     Active Substance: MIRTAZAPINE
     Indication: DEPRESSION
     Dates: start: 20170323
  4. MIRTAZAPINE. [Suspect]
     Active Substance: MIRTAZAPINE
     Dates: start: 20170621
  5. GABAPENTIN. [Concomitant]
     Active Substance: GABAPENTIN
  6. CORTISONE [Concomitant]
     Active Substance: CORTISONE\HYDROCORTISONE
  7. OTEZLA [Concomitant]
     Active Substance: APREMILAST

REACTIONS (6)
  - Eye disorder [Not Recovered/Not Resolved]
  - Palpitations [Recovered/Resolved]
  - Leukocoria [Not Recovered/Not Resolved]
  - Intraocular pressure test abnormal [Recovered/Resolved]
  - Headache [Recovered/Resolved]
  - Anxiety [Recovered/Resolved]

NARRATIVE: CASE EVENT DATE: 20170323
